FAERS Safety Report 15744861 (Version 1)
Quarter: 2018Q4

REPORT INFORMATION
  Report Type: Spontaneous
  Country: US (occurrence: US)
  Receive Date: 20181205
  Receipt Date: 20181205
  Transmission Date: 20190205
  Serious: Yes (Death)
  Sender: FDA-Public Use
  Company Number: None

PATIENT
  Age: 79 Year
  Sex: Male
  Weight: 86 kg

DRUGS (9)
  1. CASODEX [Suspect]
     Active Substance: BICALUTAMIDE
     Dates: end: 20170709
  2. LUPRON [Concomitant]
     Active Substance: LEUPROLIDE ACETATE
  3. FISH OIL [Concomitant]
     Active Substance: FISH OIL
  4. LEUPROLIDE ACETATE. [Suspect]
     Active Substance: LEUPROLIDE ACETATE
     Dates: end: 20180709
  5. PHENAZOPYRIDINE HYDROCHLORIDE. [Concomitant]
     Active Substance: PHENAZOPYRIDINE HYDROCHLORIDE
  6. TAMSULOSIN HYDROCHLORIDE. [Concomitant]
     Active Substance: TAMSULOSIN HYDROCHLORIDE
  7. VITAMIN D [Concomitant]
     Active Substance: CHOLECALCIFEROL
  8. IMODIUM [Concomitant]
     Active Substance: LOPERAMIDE HYDROCHLORIDE
  9. VITAMIN B [Concomitant]
     Active Substance: VITAMIN B

REACTIONS (8)
  - Urinary incontinence [None]
  - Obstruction gastric [None]
  - Acute kidney injury [None]
  - Diarrhoea [None]
  - Urethral stenosis [None]
  - Calculus bladder [None]
  - Testicular pain [None]
  - Haematuria [None]

NARRATIVE: CASE EVENT DATE: 20181003
